FAERS Safety Report 12293821 (Version 2)
Quarter: 2016Q2

REPORT INFORMATION
  Report Type: Spontaneous
  Country: US (occurrence: US)
  Receive Date: 20160421
  Receipt Date: 20160504
  Transmission Date: 20160815
  Serious: Yes (Hospitalization)
  Sender: FDA-Public Use
  Company Number: US-BIOMARINAP-US-2016-109502

PATIENT
  Age: 38 Year
  Sex: Female
  Weight: 24.9 kg

DRUGS (1)
  1. VIMIZIM [Suspect]
     Active Substance: ELOSULFASE ALFA
     Indication: MUCOPOLYSACCHARIDOSIS IV
     Dosage: 60 MG, QW
     Route: 042
     Dates: start: 20150216

REACTIONS (7)
  - Oropharyngeal pain [Recovered/Resolved]
  - Weight decreased [Unknown]
  - Speech disorder [Unknown]
  - Epiglottitis [Unknown]
  - Ear pain [Recovered/Resolved]
  - Swelling face [Recovered/Resolved]
  - Odynophagia [Recovered/Resolved]

NARRATIVE: CASE EVENT DATE: 20160321
